FAERS Safety Report 22160729 (Version 1)
Quarter: 2023Q1

REPORT INFORMATION
  Report Type: Report from Study
  Country: US (occurrence: US)
  Receive Date: 20230331
  Receipt Date: 20230331
  Transmission Date: 20230418
  Serious: Yes (Other)
  Sender: FDA-Public Use
  Company Number: US-MYLANLABS-2023M1033294

PATIENT
  Sex: Female

DRUGS (1)
  1. XANAX XR [Suspect]
     Active Substance: ALPRAZOLAM
     Indication: Insomnia
     Dosage: UNK
     Route: 065

REACTIONS (8)
  - Drug dependence [Unknown]
  - Illness [Unknown]
  - Nasopharyngitis [Unknown]
  - Fall [Unknown]
  - Viral infection [Unknown]
  - Insomnia [Unknown]
  - Vomiting [Unknown]
  - Diarrhoea [Unknown]
